FAERS Safety Report 7414799-3 (Version None)
Quarter: 2011Q2

REPORT INFORMATION
  Report Type: 
  Country: None (occurrence: None)
  Receive Date: 20110414
  Receipt Date: 20100316
  Transmission Date: 20111010
  Serious: No
  Sender: FDA-Public Use
  Company Number: A0850463A

PATIENT
  Age: 58 Year
  Sex: Female

DRUGS (4)
  1. UNKNOWN [Concomitant]
  2. SINGULAIR [Concomitant]
  3. SIMVASTATIN [Concomitant]
  4. LUXIQ [Suspect]
     Indication: ECZEMA
     Route: 061
     Dates: start: 20090201

REACTIONS (3)
  - DRUG INEFFECTIVE [None]
  - UNDERDOSE [None]
  - PRODUCT QUALITY ISSUE [None]
